FAERS Safety Report 24687479 (Version 1)
Quarter: 2024Q4

REPORT INFORMATION
  Report Type: Report from Study
  Country: US (occurrence: US)
  Receive Date: 20241202
  Receipt Date: 20241202
  Transmission Date: 20250115
  Serious: Yes (Death, Hospitalization)
  Sender: ALNYLAM PHARMACEUTICALS
  Company Number: US-ALNYLAM PHARMACEUTICALS, INC.-ALN-2024-006617

PATIENT

DRUGS (1)
  1. GIVLAARI [Suspect]
     Active Substance: GIVOSIRAN SODIUM
     Indication: Product used for unknown indication
     Dosage: 155 MILLIGRAM, MONTHLY
     Route: 058
     Dates: start: 20210920, end: 20210920

REACTIONS (2)
  - Death [Fatal]
  - Cardiac arrest [Unknown]

NARRATIVE: CASE EVENT DATE: 20241104
